FAERS Safety Report 6992266-9 (Version None)
Quarter: 2010Q3

REPORT INFORMATION
  Report Type: 
  Country: None (occurrence: None)
  Receive Date: 20100916
  Receipt Date: 20100916
  Transmission Date: 20110219
  Serious: Yes (Hospitalization)
  Sender: FDA-Public Use
  Company Number: None

PATIENT
  Age: 49 Year
  Sex: Male

DRUGS (2)
  1. AVASTIN [Suspect]
     Dosage: AVASTIN 605 G Q 2 WEEKS IV
     Route: 042
     Dates: start: 20091030, end: 20091123
  2. INTERFERON [Suspect]
     Dosage: INTERFERON 5 MU Q MWF IV
     Route: 042
     Dates: start: 20091030, end: 20091123

REACTIONS (6)
  - ANAEMIA [None]
  - BONE PAIN [None]
  - NAUSEA [None]
  - OSTEONECROSIS OF JAW [None]
  - THROMBOCYTOPENIA [None]
  - VOMITING [None]
